FAERS Safety Report 16089149 (Version 2)
Quarter: 2019Q2

REPORT INFORMATION
  Report Type: Spontaneous
  Country: CA (occurrence: CA)
  Receive Date: 20190319
  Receipt Date: 20190411
  Transmission Date: 20190711
  Serious: Yes (Other)
  Sender: FDA-Public Use
  Company Number: CA-AMREGENT-20190477

PATIENT

DRUGS (4)
  1. PALAFER [Concomitant]
     Active Substance: FERROUS FUMARATE
     Dosage: 200 MG DAILY
     Route: 048
  2. TYLENOL WITH CODEINE [Concomitant]
     Active Substance: ACETAMINOPHEN\CODEINE PHOSPHATE
     Dosage: UNKNOWN
     Route: 065
  3. VENOFER [Suspect]
     Active Substance: IRON SUCROSE
     Dosage: 300 MILLIGRAM ONCE
     Route: 042
     Dates: start: 20181115, end: 20181115
  4. AMOXIL [Concomitant]
     Active Substance: AMOXICILLIN
     Dosage: UNKNOWN DOSE THREE TIMES DAILY
     Route: 065

REACTIONS (2)
  - Chest pain [Unknown]
  - Back pain [Unknown]

NARRATIVE: CASE EVENT DATE: 20181115
